FAERS Safety Report 4446212-2 (Version None)
Quarter: 2004Q3

REPORT INFORMATION
  Report Type: 
  Country: None (occurrence: None)
  Receive Date: 20040902
  Receipt Date: 20040823
  Transmission Date: 20050211
  Serious: Yes (Other)
  Sender: FDA-Public Use
  Company Number: OSCN-NO-0408S-0210

PATIENT
  Age: 47 Year
  Sex: Female

DRUGS (1)
  1. OMNISCAN [Suspect]
     Indication: METASTASES TO CENTRAL NERVOUS SYSTEM
     Dosage: 10 ML, SINGLE DOSE I.V.
     Route: 042
     Dates: start: 20040816, end: 20040816

REACTIONS (2)
  - HYPOAESTHESIA [None]
  - TUMOUR HAEMORRHAGE [None]
